FAERS Safety Report 15947361 (Version 1)
Quarter: 2019Q1

REPORT INFORMATION
  Report Type: Spontaneous
  Country: US (occurrence: US)
  Receive Date: 20190211
  Receipt Date: 20190211
  Transmission Date: 20190417
  Serious: No
  Sender: FDA-Public Use
  Company Number: US-BIOCRYST PHARMACEUTICALS, INC.-2018BCR00161

PATIENT
  Age: 69 Year
  Sex: Female
  Weight: 95 kg

DRUGS (8)
  1. NIMBEX [Concomitant]
     Active Substance: CISATRACURIUM BESYLATE
     Dosage: 37.5 MG, CONTINUOUS/HR
     Route: 042
  2. VASOPRESSIN. [Concomitant]
     Active Substance: VASOPRESSIN
     Dosage: 0.08 U, CONTINUOUS/MIN
  3. SODIUM BICARBONATE; NACL 0.45% [Concomitant]
     Dosage: 100 ML, CONTINUOUS/HR
     Route: 042
  4. UNSPECIFIED MEDICATIONS [Concomitant]
     Active Substance: UNSPECIFIED INGREDIENT
  5. PROPOFOL. [Concomitant]
     Active Substance: PROPOFOL
     Dosage: 8 ?G/KG, CONTINUOUS/MIN
  6. FENTANYL. [Concomitant]
     Active Substance: FENTANYL
     Dosage: 100 ?G, CONTINUOUS/HR
     Route: 042
  7. NOREPINEPHRINE. [Concomitant]
     Active Substance: NOREPINEPHRINE
     Dosage: 30 ?G, CONTINUOUS/MIN
     Route: 042
  8. RAPIVAB [Suspect]
     Active Substance: PERAMIVIR
     Indication: INFLUENZA
     Dosage: 200 MG, ONCE
     Route: 042
     Dates: start: 20180323, end: 20180323

REACTIONS (1)
  - Injection site extravasation [Recovered/Resolved]

NARRATIVE: CASE EVENT DATE: 20180323
